FAERS Safety Report 7128908-7 (Version None)
Quarter: 2010Q4

REPORT INFORMATION
  Report Type: 
  Country: None (occurrence: None)
  Receive Date: 20101130
  Receipt Date: 20101123
  Transmission Date: 20110411
  Serious: Yes (Hospitalization)
  Sender: FDA-Public Use
  Company Number: A0894681A

PATIENT
  Age: 56 Year
  Sex: Female

DRUGS (6)
  1. ADVAIR DISKUS 100/50 [Suspect]
     Indication: ASTHMA
     Dosage: 1PUFF TWICE PER DAY
     Route: 055
  2. HYDROCHLOROTHIAZIDE [Concomitant]
  3. LORATADINE [Concomitant]
  4. PAIN MEDICATION [Concomitant]
  5. PROCARDIA [Concomitant]
  6. ALBUTEROL [Concomitant]

REACTIONS (2)
  - ASTHMA [None]
  - TREATMENT NONCOMPLIANCE [None]
